FAERS Safety Report 16327278 (Version 1)
Quarter: 2019Q2

REPORT INFORMATION
  Report Type: Spontaneous
  Country: US (occurrence: US)
  Receive Date: 20190517
  Receipt Date: 20190517
  Transmission Date: 20190711
  Serious: Yes (Hospitalization)
  Sender: FDA-Public Use
  Company Number: US-BIOGEN-2019BI00738289

PATIENT
  Age: 70 Year
  Sex: Male

DRUGS (2)
  1. AVONEX [Suspect]
     Active Substance: INTERFERON BETA-1A
     Indication: MULTIPLE SCLEROSIS
     Route: 030
     Dates: start: 19961001
  2. AVONEX [Suspect]
     Active Substance: INTERFERON BETA-1A
     Route: 030
     Dates: start: 20150217

REACTIONS (5)
  - Urinary tract infection bacterial [Unknown]
  - Multiple sclerosis relapse [Recovered/Resolved with Sequelae]
  - Dizziness [Not Recovered/Not Resolved]
  - Drug dose omission by device [Unknown]
  - Bacteraemia [Unknown]

NARRATIVE: CASE EVENT DATE: 20190415
